FAERS Safety Report 25490833 (Version 1)
Quarter: 2025Q2

REPORT INFORMATION
  Report Type: Report from Study
  Country: SE (occurrence: SE)
  Receive Date: 20250627
  Receipt Date: 20250627
  Transmission Date: 20250716
  Serious: Yes (Hospitalization)
  Sender: ABBVIE
  Company Number: SE-ABBVIE-6301909

PATIENT
  Age: 68 Year
  Sex: Male

DRUGS (3)
  1. FOSCARBIDOPA\FOSLEVODOPA [Suspect]
     Active Substance: FOSCARBIDOPA\FOSLEVODOPA
     Indication: Parkinson^s disease
     Route: 058
     Dates: start: 20250520
  2. FOSCARBIDOPA\FOSLEVODOPA [Suspect]
     Active Substance: FOSCARBIDOPA\FOSLEVODOPA
     Route: 058
     Dates: start: 20250520
  3. CLOZAPINE [Concomitant]
     Active Substance: CLOZAPINE
     Indication: Product used for unknown indication
     Dates: start: 202506

REACTIONS (14)
  - Hand fracture [Unknown]
  - Tremor [Unknown]
  - Musculoskeletal stiffness [Unknown]
  - Fine motor skill dysfunction [Unknown]
  - Therapeutic product effect incomplete [Unknown]
  - Diplopia [Unknown]
  - Mobility decreased [Unknown]
  - Fall [Unknown]
  - Poor quality sleep [Unknown]
  - Device use error [Unknown]
  - Hallucination [Recovering/Resolving]
  - Gait disturbance [Unknown]
  - Device programming error [Unknown]
  - On and off phenomenon [Unknown]

NARRATIVE: CASE EVENT DATE: 20250101
